FAERS Safety Report 6555418-8 (Version None)
Quarter: 2010Q1

REPORT INFORMATION
  Report Type: 
  Country: None (occurrence: None)
  Receive Date: 20100128
  Receipt Date: 20091029
  Transmission Date: 20100710
  Serious: No
  Sender: FDA-Public Use
  Company Number: A0814018A

PATIENT
  Age: 18 Year
  Sex: Male

DRUGS (2)
  1. WELLBUTRIN [Suspect]
     Route: 048
  2. PREDNISONE [Concomitant]

REACTIONS (2)
  - TIC [None]
  - TREMOR [None]
